FAERS Safety Report 24079847 (Version 1)
Quarter: 2024Q3

REPORT INFORMATION
  Report Type: Spontaneous
  Country: US (occurrence: None)
  Receive Date: 20240711
  Receipt Date: 20240711
  Transmission Date: 20241017
  Serious: No
  Sender: Public
  Company Number: None

PATIENT
  Age: 38 Year
  Sex: Female
  Weight: 50.4 kg

DRUGS (5)
  1. COLGATE TOTAL WHITENING [Suspect]
     Active Substance: SODIUM FLUORIDE\TRICLOSAN
     Indication: Tooth discolouration
     Dosage: OTHER QUANTITY : 1 TOOTHBRUSH;?FREQUENCY : TWICE A DAY;?OTHER ROUTE : NONE;?
     Route: 050
     Dates: start: 20240621, end: 20240710
  2. METOPROLOL [Concomitant]
     Active Substance: METOPROLOL
  3. NORTRYPTILINE [Concomitant]
  4. ZYRTEC [Concomitant]
     Active Substance: CETIRIZINE HYDROCHLORIDE
  5. VICKS NYQUIL [Concomitant]
     Active Substance: ACETAMINOPHEN\DEXTROMETHORPHAN HYDROBROMIDE\DOXYLAMINE SUCCINATE

REACTIONS (3)
  - Tooth discolouration [None]
  - Dental caries [None]
  - Vomiting [None]

NARRATIVE: CASE EVENT DATE: 20240710
